FAERS Safety Report 9985681 (Version 1)
Quarter: 2014Q1

REPORT INFORMATION
  Report Type: Report from Study
  Country: US (occurrence: US)
  Receive Date: 20140307
  Receipt Date: 20140307
  Transmission Date: 20141002
  Serious: Yes (Other)
  Sender: FDA-Public Use
  Company Number: US-ABBVIE-14P-163-1208066-00

PATIENT
  Age: 59 Year
  Sex: Female

DRUGS (3)
  1. HUMIRA [Suspect]
     Indication: PSORIASIS
     Dates: start: 20120609, end: 201307
  2. TOPICAL STEROIDS [Concomitant]
     Indication: PSORIASIS
  3. BYSTOLIC [Concomitant]
     Indication: HYPERTENSION

REACTIONS (1)
  - Mycobacterium tuberculosis complex test positive [Unknown]
